FAERS Safety Report 21672371 (Version 1)
Quarter: 2022Q4

REPORT INFORMATION
  Report Type: Spontaneous
  Country: US (occurrence: US)
  Receive Date: 20221202
  Receipt Date: 20221202
  Transmission Date: 20230112
  Serious: No
  Sender: FDA-Public Use
  Company Number: US-CSLP-13006007290-V12673562-2

PATIENT
  Age: 31 Year
  Sex: Female

DRUGS (5)
  1. ANTICOAGULANT SODIUM CITRATE [Suspect]
     Active Substance: SODIUM CITRATE
     Indication: Anticoagulant therapy
     Route: 050
     Dates: start: 20221107, end: 20221107
  2. Multivitamin supplement [Concomitant]
     Indication: Product used for unknown indication
  3. Biotin supplement [Concomitant]
     Indication: Product used for unknown indication
  4. FISH OIL [Concomitant]
     Active Substance: FISH OIL
     Indication: Product used for unknown indication
  5. NEXPLANON [Concomitant]
     Active Substance: ETONOGESTREL
     Indication: Contraception

REACTIONS (10)
  - Dizziness [Unknown]
  - Tetany [Recovered/Resolved]
  - Muscle spasms [Unknown]
  - Cold sweat [Unknown]
  - Chills [Unknown]
  - Tremor [Unknown]
  - Pain [Unknown]
  - Feeling hot [Unknown]
  - Nausea [Recovered/Resolved]
  - Hypoaesthesia [Recovered/Resolved]

NARRATIVE: CASE EVENT DATE: 20221107
